FAERS Safety Report 6261738-7 (Version None)
Quarter: 2009Q3

REPORT INFORMATION
  Report Type: 
  Country: None (occurrence: None)
  Receive Date: 20090707
  Receipt Date: 20090707
  Transmission Date: 20100115
  Serious: Yes (Hospitalization)
  Sender: FDA-Public Use
  Company Number: None

PATIENT
  Age: 26 Year
  Sex: Male
  Weight: 70.3 kg

DRUGS (1)
  1. RAPTIVA [Suspect]
     Indication: PSORIASIS
     Dosage: 125 MG Q21DAYS SQ
     Route: 058
     Dates: start: 20080708, end: 20090705

REACTIONS (2)
  - FACIAL PALSY [None]
  - MENINGITIS ASEPTIC [None]
